FAERS Safety Report 25842322 (Version 1)
Quarter: 2025Q3

REPORT INFORMATION
  Report Type: Spontaneous
  Country: GB (occurrence: GB)
  Receive Date: 20250924
  Receipt Date: 20250924
  Transmission Date: 20251021
  Serious: Yes (Other)
  Sender: MYLAN
  Company Number: None

PATIENT
  Age: 61 Year
  Sex: Female
  Weight: 80 kg

DRUGS (8)
  1. CITALOPRAM [Suspect]
     Active Substance: CITALOPRAM
     Indication: Menopausal depression
     Dosage: 10 MILLIGRAM, AM (10MG ONCE A DAY IN THE MORNING)
     Dates: start: 20250903, end: 20250916
  2. CITALOPRAM [Suspect]
     Active Substance: CITALOPRAM
     Dosage: 10 MILLIGRAM, AM (10MG ONCE A DAY IN THE MORNING)
     Route: 065
     Dates: start: 20250903, end: 20250916
  3. CITALOPRAM [Suspect]
     Active Substance: CITALOPRAM
     Dosage: 10 MILLIGRAM, AM (10MG ONCE A DAY IN THE MORNING)
     Route: 065
     Dates: start: 20250903, end: 20250916
  4. CITALOPRAM [Suspect]
     Active Substance: CITALOPRAM
     Dosage: 10 MILLIGRAM, AM (10MG ONCE A DAY IN THE MORNING)
     Dates: start: 20250903, end: 20250916
  5. TAMOXIFEN [Concomitant]
     Active Substance: TAMOXIFEN
     Indication: Breast cancer stage II
  6. TAMOXIFEN [Concomitant]
     Active Substance: TAMOXIFEN
     Route: 065
  7. TAMOXIFEN [Concomitant]
     Active Substance: TAMOXIFEN
     Route: 065
  8. TAMOXIFEN [Concomitant]
     Active Substance: TAMOXIFEN

REACTIONS (4)
  - Chest discomfort [Not Recovered/Not Resolved]
  - Heart rate irregular [Recovering/Resolving]
  - Cough [Not Recovered/Not Resolved]
  - Palpitations [Recovering/Resolving]

NARRATIVE: CASE EVENT DATE: 20250906
